FAERS Safety Report 11377797 (Version 1)
Quarter: 2015Q3

REPORT INFORMATION
  Report Type: Spontaneous
  Country: US (occurrence: US)
  Receive Date: 20150811
  Receipt Date: 20150811
  Transmission Date: 20151125
  Serious: No
  Sender: FDA-Public Use
  Company Number: US-ELI_LILLY_AND_COMPANY-US200908006514

PATIENT
  Age: 53 Year
  Sex: Male

DRUGS (2)
  1. HUMULIN N [Suspect]
     Active Substance: INSULIN HUMAN
  2. NOVOLOG [Concomitant]
     Active Substance: INSULIN ASPART
     Dosage: 5 U, AS NEEDED

REACTIONS (1)
  - Intercepted drug dispensing error [Unknown]

NARRATIVE: CASE EVENT DATE: 20090827
